FAERS Safety Report 24829881 (Version 2)
Quarter: 2025Q2

REPORT INFORMATION
  Report Type: Report from Study
  Country: US (occurrence: US)
  Receive Date: 20250110
  Receipt Date: 20250403
  Transmission Date: 20250716
  Serious: No
  Sender: SUNOVION
  Company Number: US-SMPA-2025SPA000130AA

PATIENT

DRUGS (1)
  1. ORGOVYX [Suspect]
     Active Substance: RELUGOLIX
     Indication: Prostate cancer
     Dosage: 120 MG, QD
     Route: 048
     Dates: start: 20241207

REACTIONS (5)
  - Bronchitis [Unknown]
  - Cough [Unknown]
  - Epistaxis [Unknown]
  - Hot flush [Unknown]
  - Incorrect dose administered [Unknown]
